FAERS Safety Report 21216169 (Version 1)
Quarter: 2022Q3

REPORT INFORMATION
  Report Type: Report from Study
  Country: CA (occurrence: CA)
  Receive Date: 20220816
  Receipt Date: 20220816
  Transmission Date: 20221026
  Serious: Yes (Hospitalization, Other)
  Sender: FDA-Public Use
  Company Number: None

PATIENT
  Age: 59 Year
  Sex: Female

DRUGS (7)
  1. METHOTREXATE [Suspect]
     Active Substance: METHOTREXATE
     Indication: Product used for unknown indication
     Dosage: 1 EVERY 1 WEEKS
     Route: 058
  2. FOLIC ACID [Suspect]
     Active Substance: FOLIC ACID
     Indication: Product used for unknown indication
     Route: 048
  3. ACETAMINOPHEN\OXYCODONE HYDROCHLORIDE [Concomitant]
     Active Substance: ACETAMINOPHEN\OXYCODONE HYDROCHLORIDE
     Route: 048
  4. ENBREL [Concomitant]
     Active Substance: ETANERCEPT
     Route: 058
  5. ERGOCALCIFEROL [Concomitant]
     Active Substance: ERGOCALCIFEROL
     Route: 048
  6. HUMIRA [Concomitant]
     Active Substance: ADALIMUMAB
     Route: 058
  7. OXYCODONE HYDROCHLORIDE [Concomitant]
     Active Substance: OXYCODONE HYDROCHLORIDE
     Dosage: TABLET (EXTENDED RELEASE), 3 EVERY 1 DAYS
     Route: 048

REACTIONS (7)
  - Cellulitis [Unknown]
  - Condition aggravated [Unknown]
  - General physical health deterioration [Unknown]
  - Herpes zoster [Unknown]
  - Hypertension [Unknown]
  - Psoriasis [Unknown]
  - Psoriatic arthropathy [Unknown]
